FAERS Safety Report 25397382 (Version 10)
Quarter: 2025Q4

REPORT INFORMATION
  Report Type: Spontaneous
  Country: EU (occurrence: EU)
  Receive Date: 20250604
  Receipt Date: 20251126
  Transmission Date: 20260117
  Serious: Yes (Death, Other)
  Sender: SANDOZ
  Company Number: EU-ROCHE-10000280447

PATIENT
  Age: 16 Year
  Sex: Female
  Weight: 46 kg

DRUGS (51)
  1. CARBOPLATIN [Suspect]
     Active Substance: CARBOPLATIN
     Indication: B-cell lymphoma
     Dosage: 940 MG, TOTAL
     Route: 042
     Dates: start: 20250502
  2. CYTARABINE [Suspect]
     Active Substance: CYTARABINE
     Indication: B-cell lymphoma
     Dosage: 30 MG, TOTAL
     Route: 037
     Dates: start: 20250428
  3. ETOPOSIDE [Suspect]
     Active Substance: ETOPOSIDE
     Indication: B-cell lymphoma
     Dosage: 148 MG, TOTAL
     Route: 042
     Dates: start: 20250502
  4. GRANULOCYTE COLONY-STIMULATING FACTOR NOS [Suspect]
     Active Substance: GRANULOCYTE COLONY-STIMULATING FACTOR NOS
     Indication: B-cell lymphoma
     Dosage: 250 UG
     Route: 042
     Dates: start: 20250507
  5. GAZYVA [Suspect]
     Active Substance: OBINUTUZUMAB
     Indication: B-cell lymphoma
     Dosage: 100 MG,TOTAL,START DATE OF MOST RECENT DOSE OF STUDY  DRUG PRIOR TO AE: 01-MAY-2025, 900MG
     Route: 042
     Dates: start: 20250420
  6. GAZYVA [Suspect]
     Active Substance: OBINUTUZUMAB
     Dosage: 900 MG
     Route: 042
     Dates: start: 20250420
  7. GLOFITAMAB [Suspect]
     Active Substance: GLOFITAMAB
     Indication: B-cell lymphoma
     Dosage: 2.5 MG,MOST RECENT DOSE: 2.5MG ON 07-MAY-2025
     Route: 042
     Dates: start: 20250507
  8. GRANULOCYTE COLONY-STIMULATING FACTOR NOS [Suspect]
     Active Substance: GRANULOCYTE COLONY-STIMULATING FACTOR NOS
     Indication: B-cell lymphoma
     Dosage: 250 MICROGRAM
     Route: 058
     Dates: start: 20250505
  9. HYDROCORTISONE [Suspect]
     Active Substance: HYDROCORTISONE
     Indication: B-cell lymphoma
     Dosage: 10 MILLIGRAM, TOTAL
     Route: 037
     Dates: start: 20250428
  10. IFOSFAMIDE [Suspect]
     Active Substance: IFOSFAMIDE
     Indication: B-cell lymphoma
     Dosage: 4.44 G, TOTAL
     Route: 042
     Dates: start: 20250502
  11. LENOGRASTIM [Suspect]
     Active Substance: LENOGRASTIM
     Indication: B-cell lymphoma
     Dosage: 250 MG
     Route: 042
     Dates: start: 20250507
  12. LENOGRASTIM [Suspect]
     Active Substance: LENOGRASTIM
     Dosage: UNK
     Route: 058
     Dates: start: 20250505
  13. METHOTREXATE [Suspect]
     Active Substance: METHOTREXATE
     Indication: B-cell lymphoma
     Dosage: 15 MILLIGRAM, TOTAL
     Route: 037
     Dates: start: 20250428
  14. MESNA [Suspect]
     Active Substance: MESNA
     Indication: B-cell lymphoma
     Dosage: 900 MG, TOTAL, DOSE LAST STUDY DRUG ADMIN PRIOR AE-4500 MG
     Route: 042
     Dates: start: 20250502
  15. AMPHOTERICIN B [Concomitant]
     Active Substance: AMPHOTERICIN B
     Indication: Prophylaxis
     Dosage: 1 ML, PRN
     Route: 048
     Dates: start: 20250422, end: 20250513
  16. CLEMASTINE [Concomitant]
     Active Substance: CLEMASTINE
     Indication: Prophylaxis
     Dosage: 1.15 MILLIGRAM, PRN
     Route: 042
     Dates: start: 20250430, end: 20250514
  17. DIMENHYDRINATE [Concomitant]
     Active Substance: DIMENHYDRINATE
     Indication: Nausea
     Dosage: 50 MILLIGRAM, PRN
     Route: 042
     Dates: start: 20250503, end: 20250505
  18. FILGRASTIM [Concomitant]
     Active Substance: FILGRASTIM
     Indication: Blood disorder prophylaxis
     Dosage: 250 MICROGRAM, QD
     Route: 042
     Dates: start: 20250511, end: 20250524
  19. FILGRASTIM [Concomitant]
     Active Substance: FILGRASTIM
     Dosage: 250 MICROGRAM, QD
     Route: 042
     Dates: start: 20250505, end: 20250507
  20. Kalinor [Concomitant]
     Indication: Hypokalaemia
     Dosage: 3 DOSAGE FORM, QD
     Route: 048
     Dates: start: 20250502, end: 20250502
  21. Kalinor [Concomitant]
     Dosage: UNK
     Route: 065
  22. LEVOMEPROMAZINE [Concomitant]
     Active Substance: LEVOMEPROMAZINE
     Indication: Nausea
     Dosage: 20 MG, QD
     Route: 048
     Dates: start: 20250506, end: 20250506
  23. LEVOMEPROMAZINE [Concomitant]
     Active Substance: LEVOMEPROMAZINE
     Dosage: UNK
     Route: 065
  24. POLYETHYLENE GLYCOLS [Concomitant]
     Active Substance: POLYETHYLENE GLYCOLS
     Indication: Prophylaxis
     Dosage: UNK UNK, QD
     Route: 048
     Dates: start: 20250506, end: 20250506
  25. METAMIZOLE [Concomitant]
     Active Substance: METAMIZOLE
     Dosage: 2.5 MG,GIVEN FOR PROPHYLAXIS
     Route: 042
     Dates: start: 20250508, end: 20250512
  26. METAMIZOLE [Concomitant]
     Active Substance: METAMIZOLE
     Indication: Pyrexia
     Dosage: 500 MILLIGRAM, QD
     Route: 048
     Dates: start: 20250430, end: 20250430
  27. METAMIZOLE [Concomitant]
     Active Substance: METAMIZOLE
     Dosage: 600 MILLIGRAM, PRN
     Route: 042
     Dates: start: 20250503, end: 20250503
  28. METAMIZOLE [Concomitant]
     Active Substance: METAMIZOLE
     Dosage: 700 MILLIGRAM, QD
     Route: 042
     Dates: start: 20250426, end: 20250426
  29. METAMIZOLE [Concomitant]
     Active Substance: METAMIZOLE
     Dosage: 700 MILLIGRAM, QD
     Route: 042
     Dates: start: 20250430, end: 20250430
  30. METAMIZOLE [Concomitant]
     Active Substance: METAMIZOLE
     Indication: Pyrexia
     Dosage: 700 MILLIGRAM, BID
     Route: 042
     Dates: start: 20250428, end: 20250428
  31. METAMIZOLE [Concomitant]
     Active Substance: METAMIZOLE
     Dosage: 700 MILLIGRAM, QID
     Route: 042
     Dates: start: 20250429, end: 20250429
  32. METAMIZOLE [Concomitant]
     Active Substance: METAMIZOLE
     Dosage: UNK UNK, QD
     Route: 042
     Dates: start: 20250503, end: 20250512
  33. METAMIZOLE [Concomitant]
     Active Substance: METAMIZOLE
     Dosage: UNK
     Route: 065
  34. METHYLPREDNISOLONE [Concomitant]
     Active Substance: METHYLPREDNISOLONE
     Indication: Prophylaxis
     Dosage: 100 MILLIGRAM, PRN
     Route: 042
     Dates: start: 20250430, end: 20250507
  35. MORPHINE SULFATE [Concomitant]
     Active Substance: MORPHINE SULFATE
     Indication: Prophylaxis
     Dosage: 220 MG, QD
     Route: 042
     Dates: start: 20250507, end: 20250511
  36. MORPHINE SULFATE [Concomitant]
     Active Substance: MORPHINE SULFATE
     Indication: Pain
  37. ONDANSETRON [Concomitant]
     Active Substance: ONDANSETRON
     Indication: Nausea
     Dosage: 7 MG, QD
     Route: 042
     Dates: start: 20250428, end: 20250428
  38. ONDANSETRON [Concomitant]
     Active Substance: ONDANSETRON
     Dosage: 7 MG, QD
     Route: 042
     Dates: start: 20250504, end: 20250504
  39. ONDANSETRON [Concomitant]
     Active Substance: ONDANSETRON
     Dosage: 7 MG, BID
     Route: 042
     Dates: start: 20250505, end: 20250506
  40. ONDANSETRON [Concomitant]
     Active Substance: ONDANSETRON
     Dosage: 8 MG, QD
     Route: 042
     Dates: start: 20250430, end: 20250430
  41. ONDANSETRON [Concomitant]
     Active Substance: ONDANSETRON
     Dosage: 8 MG, BID
     Route: 042
     Dates: start: 20250501, end: 20250504
  42. PANTOPRAZOLE [Concomitant]
     Active Substance: PANTOPRAZOLE
     Indication: Prophylaxis
     Dosage: 20 MILLIGRAM, QD
     Route: 048
     Dates: start: 20250430, end: 20250506
  43. ACETAMINOPHEN [Concomitant]
     Active Substance: ACETAMINOPHEN
     Indication: Pyrexia
     Dosage: 500 MG, QD
     Route: 042
     Dates: start: 20250501, end: 20250501
  44. ACETAMINOPHEN [Concomitant]
     Active Substance: ACETAMINOPHEN
     Indication: Prophylaxis
     Dosage: 700 MG, PRN
     Route: 042
     Dates: start: 20250430, end: 20250508
  45. PIPERACILLIN SODIUM\TAZOBACTAM SODIUM [Concomitant]
     Active Substance: PIPERACILLIN SODIUM\TAZOBACTAM SODIUM
     Indication: Prophylaxis
     Dosage: 4 G, BID
     Route: 042
     Dates: start: 20250508, end: 20250508
  46. Reducto [Concomitant]
     Indication: Hypokalaemia
     Dosage: 2 DF, QD
     Route: 048
     Dates: start: 20250506, end: 20250506
  47. VALACYCLOVIR HYDROCHLORIDE [Concomitant]
     Active Substance: VALACYCLOVIR HYDROCHLORIDE
     Indication: Prophylaxis
     Dosage: 500 MG, BID
     Route: 048
     Dates: start: 20250326, end: 20250430
  48. VANCOMYCIN [Concomitant]
     Active Substance: VANCOMYCIN
     Indication: Prophylaxis
     Dosage: 650 MG, BID
     Route: 042
     Dates: start: 20250508, end: 20250508
  49. VANCOMYCIN [Concomitant]
     Active Substance: VANCOMYCIN
     Dosage: 650 MG, TID
     Route: 042
     Dates: start: 20250509, end: 20250511
  50. VASOPRESSIN [Concomitant]
     Active Substance: VASOPRESSIN
     Indication: Hypotension
     Dosage: UNK
     Route: 065
  51. VASOPRESSIN [Concomitant]
     Active Substance: VASOPRESSIN
     Dosage: UNK
     Route: 065

REACTIONS (3)
  - Death [Fatal]
  - Cytokine release syndrome [Recovered/Resolved]
  - Febrile neutropenia [Recovered/Resolved]

NARRATIVE: CASE EVENT DATE: 20250507
